FAERS Safety Report 25109133 (Version 1)
Quarter: 2025Q1

REPORT INFORMATION
  Report Type: Other
  Country: IN (occurrence: IN)
  Receive Date: 20250322
  Receipt Date: 20250322
  Transmission Date: 20250408
  Serious: Yes (Other)
  Sender: LYNE LABORATORIES
  Company Number: IN-Lyne Laboratories Inc.-2173459

PATIENT
  Sex: Female

DRUGS (15)
  1. CYPROHEPTADINE HYDROCHLORIDE [Suspect]
     Active Substance: CYPROHEPTADINE HYDROCHLORIDE
     Indication: Serotonin syndrome
  2. IBUPROFEN [Suspect]
     Active Substance: IBUPROFEN
  3. VALPROATE [Suspect]
     Active Substance: VALPROIC ACID
  4. AMITRIPTYLINE HYDROCHLORIDE [Suspect]
     Active Substance: AMITRIPTYLINE HYDROCHLORIDE
  5. DICLOFENAC SODIUM [Suspect]
     Active Substance: DICLOFENAC SODIUM
  6. PROPRANOLOL [Suspect]
     Active Substance: PROPRANOLOL HYDROCHLORIDE
  7. DOTHIEPIN [Suspect]
     Active Substance: DOTHIEPIN\DOTHIEPIN HYDROCHLORIDE
  8. VALPROATE SODIUM [Suspect]
     Active Substance: VALPROATE SODIUM
  9. ACETAMINOPHEN\TRAMADOL [Suspect]
     Active Substance: ACETAMINOPHEN\TRAMADOL
     Dates: start: 202203
  10. NORTRIPTYLINE HYDROCHLORIDE [Suspect]
     Active Substance: NORTRIPTYLINE HYDROCHLORIDE
     Dates: start: 202203
  11. TOPIRAMATE [Suspect]
     Active Substance: TOPIRAMATE
     Dates: start: 202203
  12. VENLAFAXINE [Suspect]
     Active Substance: VENLAFAXINE HYDROCHLORIDE
     Dates: start: 2022
  13. FLUNARIZINE [Suspect]
     Active Substance: FLUNARIZINE
     Dates: start: 2022
  14. SUMATRIPTAN [Suspect]
     Active Substance: SUMATRIPTAN
     Dates: start: 202201
  15. NAPROXEN [Suspect]
     Active Substance: NAPROXEN
     Dates: start: 202201

REACTIONS (3)
  - Serotonin syndrome [Recovered/Resolved]
  - Product use in unapproved indication [Unknown]
  - Rebound effect [Recovered/Resolved]
